FAERS Safety Report 19846443 (Version 1)
Quarter: 2021Q3

REPORT INFORMATION
  Report Type: Spontaneous
  Country: US (occurrence: US)
  Receive Date: 20210917
  Receipt Date: 20210917
  Transmission Date: 20211014
  Serious: No
  Sender: FDA-Public Use
  Company Number: US-TEVA-2021-US-1952975

PATIENT
  Sex: Male

DRUGS (1)
  1. AJOVY [Suspect]
     Active Substance: FREMANEZUMAB-VFRM
     Indication: MIGRAINE
     Dosage: STRENGTH: 225 MG / 1.5 ML
     Route: 065

REACTIONS (6)
  - Product preparation issue [Unknown]
  - Product quality issue [Unknown]
  - Allergy to chemicals [Unknown]
  - Burning sensation [Unknown]
  - Dyspnoea [Unknown]
  - Erythema [Unknown]
